FAERS Safety Report 12756226 (Version 1)
Quarter: 2016Q3

REPORT INFORMATION
  Report Type: Spontaneous
  Country: JP (occurrence: JP)
  Receive Date: 20160916
  Receipt Date: 20160916
  Transmission Date: 20161109
  Serious: Yes (Hospitalization, Other)
  Sender: FDA-Public Use
  Company Number: JP-GLAXOSMITHKLINE-JP2016JPN094101

PATIENT
  Age: 42 Year
  Sex: Female

DRUGS (16)
  1. DIAZEPAM. [Concomitant]
     Active Substance: DIAZEPAM
     Indication: ANXIETY
     Dosage: 5 MG, PRN
  2. LAMICTAL [Suspect]
     Active Substance: LAMOTRIGINE
     Dosage: 50 MG, BID
     Route: 048
     Dates: start: 20151130, end: 20160111
  3. LAMICTAL [Suspect]
     Active Substance: LAMOTRIGINE
     Dosage: 150 MG, 1D
     Route: 048
     Dates: start: 20160404, end: 20160424
  4. QUETIAPINE. [Concomitant]
     Active Substance: QUETIAPINE
     Dosage: 25 MG, QD
  5. LOXONIN [Concomitant]
     Active Substance: LOXOPROFEN SODIUM
     Dosage: 2 DF, BID
  6. MIDODRINE TABLET [Concomitant]
     Dosage: 2 MG, BID
  7. LAMICTAL [Suspect]
     Active Substance: LAMOTRIGINE
     Dosage: 175 MG, 1D
     Route: 048
     Dates: start: 20160425, end: 20160619
  8. LAMICTAL [Suspect]
     Active Substance: LAMOTRIGINE
     Dosage: UNK
     Route: 048
     Dates: start: 20160623, end: 20160623
  9. ZOPICLONE [Concomitant]
     Active Substance: ZOPICLONE
     Dosage: 7.5 MG, QD
  10. LAMICTAL [Suspect]
     Active Substance: LAMOTRIGINE
     Dosage: 225 MG, 1D
  11. LAMICTAL [Suspect]
     Active Substance: LAMOTRIGINE
     Dosage: 125 MG, 1D
     Route: 048
     Dates: start: 20160112, end: 20160403
  12. LAMICTAL [Suspect]
     Active Substance: LAMOTRIGINE
     Indication: BIPOLAR DISORDER
     Dosage: 25 MG, QD
     Dates: start: 20151102, end: 20151116
  13. LAMICTAL [Suspect]
     Active Substance: LAMOTRIGINE
     Dosage: 50 MG, QD
     Route: 048
     Dates: start: 20151117, end: 20151129
  14. LAMICTAL [Suspect]
     Active Substance: LAMOTRIGINE
     Dosage: 100 MG, BID
     Route: 048
     Dates: start: 20160620
  15. CYMBALTA [Concomitant]
     Active Substance: DULOXETINE HYDROCHLORIDE
     Dosage: 20 MG, QD
  16. REFLEX [Concomitant]
     Active Substance: MIRTAZAPINE
     Dosage: 30 MG, QD

REACTIONS (13)
  - Staring [Recovering/Resolving]
  - Aura [Unknown]
  - Altered state of consciousness [Recovering/Resolving]
  - Hypokalaemia [Unknown]
  - White blood cell count decreased [Unknown]
  - Irritability [Recovered/Resolved]
  - Disorientation [Unknown]
  - Overdose [Unknown]
  - Status epilepticus [Recovering/Resolving]
  - Headache [Unknown]
  - Somnolence [Unknown]
  - Treatment noncompliance [Unknown]
  - Muscle rigidity [Recovering/Resolving]

NARRATIVE: CASE EVENT DATE: 20160623
